FAERS Safety Report 15423762 (Version 8)
Quarter: 2019Q2

REPORT INFORMATION
  Report Type: Report from Study
  Country: US (occurrence: US)
  Receive Date: 20180925
  Receipt Date: 20190425
  Transmission Date: 20190711
  Serious: Yes (Other)
  Sender: FDA-Public Use
  Company Number: PHHY2018US106600

PATIENT
  Age: 14 Year
  Sex: Female

DRUGS (2)
  1. GILENYA [Suspect]
     Active Substance: FINGOLIMOD HYDROCHLORIDE
     Dosage: 0.5 MG, QD
     Route: 048
     Dates: start: 20180702
  2. GILENYA [Suspect]
     Active Substance: FINGOLIMOD HYDROCHLORIDE
     Indication: MULTIPLE SCLEROSIS
     Dosage: 0.5 MG, QD
     Route: 048
     Dates: start: 20180629

REACTIONS (20)
  - Dysuria [Recovered/Resolved]
  - Rhinorrhoea [Not Recovered/Not Resolved]
  - Fatigue [Recovered/Resolved]
  - Oropharyngeal pain [Not Recovered/Not Resolved]
  - Nasopharyngitis [Recovered/Resolved]
  - Central nervous system lesion [Not Recovered/Not Resolved]
  - Rash macular [Recovering/Resolving]
  - Memory impairment [Not Recovered/Not Resolved]
  - Cough [Recovering/Resolving]
  - Epistaxis [Recovered/Resolved]
  - White blood cell count decreased [Not Recovered/Not Resolved]
  - Viral infection [Recovered/Resolved]
  - Mood swings [Not Recovered/Not Resolved]
  - Abdominal pain upper [Recovered/Resolved]
  - Heart rate decreased [Recovered/Resolved]
  - Pharyngitis streptococcal [Not Recovered/Not Resolved]
  - Tension headache [Recovered/Resolved]
  - Ear pain [Not Recovered/Not Resolved]
  - Feeling abnormal [Unknown]
  - Depressed mood [Recovering/Resolving]

NARRATIVE: CASE EVENT DATE: 20180702
